FAERS Safety Report 4492824-X (Version None)
Quarter: 2004Q4

REPORT INFORMATION
  Report Type: 
  Country: None (occurrence: None)
  Receive Date: 20041029
  Receipt Date: 20041022
  Transmission Date: 20050328
  Serious: Yes (Disabling)
  Sender: FDA-Public Use
  Company Number: 002#4#2004-00255

PATIENT
  Age: 56 Year
  Sex: Female

DRUGS (2)
  1. PPA/CPM-75/8MG (OTC) (PHENYLPROPANOLAMINE HCL, CHLORPHENIRAMINE MALEAT [Suspect]
     Dosage: SEE IMAGE
     Route: 048
  2. ROBITUSSIN-CF [Suspect]
     Dosage: SEE IMAGE
     Route: 048

REACTIONS (1)
  - CEREBROVASCULAR ACCIDENT [None]
